FAERS Safety Report 4350439-8 (Version None)
Quarter: 2004Q2

REPORT INFORMATION
  Report Type: 
  Country: None (occurrence: None)
  Receive Date: 20040427
  Receipt Date: 20040413
  Transmission Date: 20050107
  Serious: Yes (Hospitalization)
  Sender: FDA-Public Use
  Company Number: US-JNJFOC-20040403277

PATIENT
  Age: 63 Year
  Sex: Male

DRUGS (11)
  1. INFLIXIMAB,  RECOMBINANT- BLINDED (INFLIXIMAB, RECOMBINANT) LYOPHILIZE [Suspect]
     Indication: COLITIS ULCERATIVE
     Dosage: INTRAVENOUS
     Route: 042
     Dates: start: 20030408
  2. INFLIXIMAB,  RECOMBINANT- BLINDED (INFLIXIMAB, RECOMBINANT) LYOPHILIZE [Suspect]
     Indication: COLITIS ULCERATIVE
     Dosage: INTRAVENOUS
     Route: 042
     Dates: start: 20030424
  3. INFLIXIMAB,  RECOMBINANT- BLINDED (INFLIXIMAB, RECOMBINANT) LYOPHILIZE [Suspect]
     Indication: COLITIS ULCERATIVE
     Dosage: INTRAVENOUS
     Route: 042
     Dates: start: 20030611
  4. PLACEBO (PLACEBO) LYOPHILIZED POWDER [Suspect]
     Indication: COLITIS ULCERATIVE
     Dosage: INTRAVENOUS
     Route: 042
     Dates: start: 20030408
  5. PLACEBO (PLACEBO) LYOPHILIZED POWDER [Suspect]
     Indication: COLITIS ULCERATIVE
     Dosage: INTRAVENOUS
     Route: 042
     Dates: start: 20030424
  6. PLACEBO (PLACEBO) LYOPHILIZED POWDER [Suspect]
     Indication: COLITIS ULCERATIVE
     Dosage: INTRAVENOUS
     Route: 042
     Dates: start: 20030611
  7. FOLIC ACID [Concomitant]
  8. BENTYL [Concomitant]
  9. LOMOTIL [Concomitant]
  10. COLAZAL (BALSALAZIDE SODIUM) [Concomitant]
  11. AVANDIA [Concomitant]

REACTIONS (3)
  - DRUG INEFFECTIVE [None]
  - ILEOSTOMY [None]
  - PROCTOCOLECTOMY [None]
